FAERS Safety Report 8596240 (Version 4)
Quarter: 2014Q1

REPORT INFORMATION
  Report Type: Spontaneous
  Country: US (occurrence: US)
  Receive Date: 20120605
  Receipt Date: 20140114
  Transmission Date: 20141002
  Serious: Yes (Hospitalization)
  Sender: FDA-Public Use
  Company Number: US-ASTRAZENECA-2012SE35738

PATIENT
  Age: 13437 Day
  Sex: Female

DRUGS (40)
  1. NEXIUM [Suspect]
     Indication: GASTROOESOPHAGEAL REFLUX DISEASE
     Dosage: DAILY
     Route: 048
     Dates: start: 20040203
  2. NEXIUM [Suspect]
     Indication: GASTROOESOPHAGEAL REFLUX DISEASE
     Route: 048
     Dates: start: 20090305
  3. NEXIUM [Suspect]
     Indication: GASTROOESOPHAGEAL REFLUX DISEASE
     Route: 048
     Dates: start: 20101201
  4. OMEPRAZOLE [Suspect]
     Route: 048
  5. OMEPRAZOLE [Suspect]
     Route: 048
     Dates: start: 20060308
  6. PRILOSEC OTC [Suspect]
     Route: 048
  7. PEPTO BISMOL [Concomitant]
  8. ASPIRIN [Concomitant]
  9. VITAMIN D [Concomitant]
  10. AMLODIPINE [Concomitant]
  11. LASIX [Concomitant]
  12. DIAVAN [Concomitant]
  13. PHENEYSAR [Concomitant]
  14. EFFIENT [Concomitant]
  15. LOPERAMIDE [Concomitant]
  16. CLONIDINE [Concomitant]
  17. FLUTICASONE [Concomitant]
  18. METOPROLOL TARTRATE [Concomitant]
  19. RESLAN [Concomitant]
  20. LOSARTAN [Concomitant]
  21. MELOXICAM [Concomitant]
  22. LIPITOR [Concomitant]
  23. OMEGA 3 FATTY ACID [Concomitant]
  24. HYDROCODONE/ ACETAMENOPHEN [Concomitant]
     Dosage: 7.5 MG/ 500 MG
  25. LISINOPRIL [Concomitant]
  26. JANUVIA [Concomitant]
  27. GABAPENTIN [Concomitant]
  28. PROMETHAZINE [Concomitant]
  29. PROCHLORPERAZINE [Concomitant]
  30. CYCLOBENZAPRINE [Concomitant]
  31. IBUPROFEN [Concomitant]
  32. DICLOFENAC SODIUM [Concomitant]
  33. RANITIDINE [Concomitant]
  34. GLIPIZIDE [Concomitant]
  35. METFORMIN [Concomitant]
  36. WARFARIN [Concomitant]
  37. TRICOR [Concomitant]
  38. KLOR-CON [Concomitant]
  39. LEVOTHYROXINE [Concomitant]
  40. SULFAMETHOXAZOLE+TRIMETHOPRIM [Concomitant]
     Dosage: 800/160 MG

REACTIONS (7)
  - Musculoskeletal disorder [Unknown]
  - Malaise [Unknown]
  - Osteoporosis [Unknown]
  - Upper limb fracture [Unknown]
  - Renal disorder [Unknown]
  - Vitamin D deficiency [Unknown]
  - Back disorder [Unknown]
